FAERS Safety Report 9005919 (Version 1)
Quarter: 2013Q1

REPORT INFORMATION
  Report Type: Spontaneous
  Country: PL (occurrence: PL)
  Receive Date: 20130109
  Receipt Date: 20130109
  Transmission Date: 20140127
  Serious: Yes (Life-Threatening)
  Sender: FDA-Public Use
  Company Number: PL-BAYER-2013-002680

PATIENT
  Age: 37 Year
  Sex: Male
  Weight: 63 kg

DRUGS (1)
  1. ULTRAVIST [Suspect]
     Indication: UROGRAM
     Dosage: 5 ML, UNK
     Route: 042
     Dates: start: 20121212

REACTIONS (5)
  - Loss of consciousness [Unknown]
  - Pulse absent [Unknown]
  - Blood pressure decreased [Unknown]
  - Pallor [Unknown]
  - Convulsion [Unknown]
